FAERS Safety Report 8123244-4 (Version None)
Quarter: 2012Q1

REPORT INFORMATION
  Report Type: 
  Country: None (occurrence: None)
  Receive Date: 20120208
  Receipt Date: 20120206
  Transmission Date: 20120608
  Serious: Yes (Death)
  Sender: FDA-Public Use
  Company Number: GB-ABBOTT-12P-167-0901644-00

PATIENT
  Sex: Female

DRUGS (2)
  1. AZATHIOPRINE [Concomitant]
     Indication: PRODUCT USED FOR UNKNOWN INDICATION
     Dates: start: 20080729
  2. HUMIRA [Suspect]
     Indication: RHEUMATOID ARTHRITIS
     Route: 058
     Dates: start: 20070612, end: 20080729

REACTIONS (7)
  - VASCULAR DEMENTIA [None]
  - HYPOTHYROIDISM [None]
  - RENAL ARTERY STENOSIS [None]
  - HYPERTENSION [None]
  - RHEUMATOID ARTHRITIS [None]
  - GALLBLADDER DISORDER [None]
  - CEREBRAL INFARCTION [None]
